FAERS Safety Report 18389688 (Version 1)
Quarter: 2020Q4

REPORT INFORMATION
  Report Type: Spontaneous
  Country: US (occurrence: US)
  Receive Date: 20201015
  Receipt Date: 20201015
  Transmission Date: 20210114
  Serious: Yes (Death, Life-Threatening, Hospitalization, Other)
  Sender: FDA-Public Use
  Company Number: US-AMGEN-USASP2020164675

PATIENT
  Age: 20 Year
  Sex: Male

DRUGS (9)
  1. MARAVIROC [Concomitant]
     Active Substance: MARAVIROC
     Dosage: UNK
  2. METHYLPREDNISOLONE. [Concomitant]
     Active Substance: METHYLPREDNISOLONE
     Indication: PROPHYLAXIS
  3. FILGRASTIM [Suspect]
     Active Substance: FILGRASTIM
     Indication: NEUTROPENIA
     Dosage: UNK
     Route: 065
  4. VALGANCICLOVIR. [Suspect]
     Active Substance: VALGANCICLOVIR
     Indication: PROPHYLAXIS
     Dosage: 1000 MILLIGRAM
     Route: 065
  5. MYCOPHENOLATE MOFETIL. [Concomitant]
     Active Substance: MYCOPHENOLATE MOFETIL
     Indication: PROPHYLAXIS
     Dosage: 1000 MILLIGRAM, BID
  6. VALGANCICLOVIR. [Suspect]
     Active Substance: VALGANCICLOVIR
     Dosage: 900 MILLIGRAM, BID
     Route: 065
  7. TACROLIMUS. [Concomitant]
     Active Substance: TACROLIMUS
     Indication: PROPHYLAXIS
     Dosage: UNK (7.8-10 NG/ML)
  8. PREDNISONE. [Concomitant]
     Active Substance: PREDNISONE
     Indication: DEAFNESS
     Dosage: 60 MILLIGRAM (FOLLOWED BY A 12-DAY TAPER DOSE)
     Route: 048
  9. ALEMTUZUMAB [Concomitant]
     Active Substance: ALEMTUZUMAB
     Indication: PROPHYLAXIS

REACTIONS (11)
  - Pulmonary haemorrhage [Unknown]
  - Depressed level of consciousness [Unknown]
  - Neurological decompensation [Fatal]
  - Immune reconstitution inflammatory syndrome [Unknown]
  - Urinary incontinence [Unknown]
  - Pupils unequal [Unknown]
  - Pleocytosis [Unknown]
  - Off label use [Unknown]
  - JC virus infection [Unknown]
  - Pneumonia aspiration [Unknown]
  - Central nervous system lesion [Unknown]
